FAERS Safety Report 4801615-9 (Version None)
Quarter: 2005Q4

REPORT INFORMATION
  Report Type: 
  Country: None (occurrence: None)
  Receive Date: 20051018
  Receipt Date: 20051013
  Transmission Date: 20060501
  Serious: Yes (Other)
  Sender: FDA-Public Use
  Company Number: 200512960JP

PATIENT
  Age: 70 Year
  Sex: Male

DRUGS (2)
  1. RILUTEK [Suspect]
     Indication: AMYOTROPHIC LATERAL SCLEROSIS
     Dates: start: 20050301
  2. UNKNOWN DRUG [Concomitant]

REACTIONS (1)
  - INTERSTITIAL LUNG DISEASE [None]
